FAERS Safety Report 4814900-1 (Version None)
Quarter: 2005Q4

REPORT INFORMATION
  Report Type: 
  Country: None (occurrence: None)
  Receive Date: 20051028
  Receipt Date: 20041123
  Transmission Date: 20060501
  Serious: Yes (Hospitalization, Disabling)
  Sender: FDA-Public Use
  Company Number: US-ROCHE-387351

PATIENT
  Age: 21 Year
  Sex: Female
  Weight: 54.4 kg

DRUGS (1)
  1. ACCUTANE [Suspect]
     Indication: ACNE
     Route: 048
     Dates: start: 20000523, end: 20001015

REACTIONS (32)
  - ATELECTASIS [None]
  - CHEST PAIN [None]
  - CHOLECYSTITIS [None]
  - CHOLELITHIASIS [None]
  - COLITIS [None]
  - CROHN'S DISEASE [None]
  - DEHYDRATION [None]
  - DEPRESSION [None]
  - ELECTROCARDIOGRAM T WAVE ABNORMAL [None]
  - EROSIVE DUODENITIS [None]
  - GASTROINTESTINAL DISORDER [None]
  - HEPATIC INFARCTION [None]
  - HEPATIC STEATOSIS [None]
  - HEPATOMEGALY [None]
  - INFLAMMATORY BOWEL DISEASE [None]
  - INTESTINAL HAEMORRHAGE [None]
  - INTESTINAL OBSTRUCTION [None]
  - IRON DEFICIENCY ANAEMIA [None]
  - MESENTERIC VEIN THROMBOSIS [None]
  - MICROCYTIC ANAEMIA [None]
  - MULTI-ORGAN DISORDER [None]
  - NEUTROPENIA [None]
  - NIGHT BLINDNESS [None]
  - OVARIAN CYST RUPTURED [None]
  - PORTAL VEIN THROMBOSIS [None]
  - RECTAL HAEMORRHAGE [None]
  - SEPSIS [None]
  - SMALL INTESTINE ULCER [None]
  - SUBILEUS [None]
  - SYNCOPE [None]
  - URINARY TRACT INFECTION [None]
  - WEIGHT DECREASED [None]
